FAERS Safety Report 16908676 (Version 1)
Quarter: 2019Q4

REPORT INFORMATION
  Report Type: Spontaneous
  Country: US (occurrence: US)
  Receive Date: 20191011
  Receipt Date: 20191011
  Transmission Date: 20200122
  Serious: No
  Sender: FDA-Public Use
  Company Number: US-009507513-1909USA004297

PATIENT
  Age: 62 Year
  Sex: Female

DRUGS (9)
  1. USTEKINUMAB [Concomitant]
     Active Substance: USTEKINUMAB
     Indication: PSORIASIS
     Dosage: 90 MILLIGRAM, EVERY 12 WEEKS
     Route: 058
  2. FLUOCINONIDE. [Concomitant]
     Active Substance: FLUOCINONIDE
     Indication: LICHEN PLANOPILARIS
     Dosage: UNK, BID
     Route: 061
  3. PROPECIA [Suspect]
     Active Substance: FINASTERIDE
     Indication: LICHEN PLANOPILARIS
     Dosage: UNK
     Route: 048
  4. MINOCYCLINE [Concomitant]
     Active Substance: MINOCYCLINE HYDROCHLORIDE
     Indication: LICHEN PLANOPILARIS
     Dosage: 100 MG TWICE DAILY, FOR OVER ONE YEAR
     Route: 048
  5. HYDROXYCHLOROQUINE SULFATE. [Concomitant]
     Active Substance: HYDROXYCHLOROQUINE SULFATE
     Indication: LICHEN PLANOPILARIS
     Dosage: 200 MILLIGRAM, BID
     Route: 048
  6. TACROLIMUS. [Concomitant]
     Active Substance: TACROLIMUS
     Indication: LICHEN PLANOPILARIS
     Dosage: UNK, QD
     Route: 061
  7. CLINDAMYCIN. [Concomitant]
     Active Substance: CLINDAMYCIN
     Indication: LICHEN PLANOPILARIS
     Dosage: UNK, QD; TO THE SCALP
     Route: 061
  8. TRIAMCINOLONE [Concomitant]
     Active Substance: TRIAMCINOLONE
     Indication: LICHEN PLANOPILARIS
     Dosage: UNK, MULTIPLE
     Route: 026
  9. MINOXIDIL. [Concomitant]
     Active Substance: MINOXIDIL
     Indication: LICHEN PLANOPILARIS
     Dosage: UNK, QD; FORMULATION: FOAM

REACTIONS (1)
  - Off label use [Unknown]
